FAERS Safety Report 17939529 (Version 1)
Quarter: 2020Q2

REPORT INFORMATION
  Report Type: Spontaneous
  Country: US (occurrence: US)
  Receive Date: 20200624
  Receipt Date: 20200624
  Transmission Date: 20200714
  Serious: Yes (Other)
  Sender: FDA-Public Use
  Company Number: US-BAYER-2020-126029

PATIENT
  Sex: Male
  Weight: 119.5 kg

DRUGS (2)
  1. KOGENATE FS [Suspect]
     Active Substance: ANTIHEMOPHILIC FACTOR, HUMAN RECOMBINANT
     Indication: FACTOR VIII DEFICIENCY
     Dosage: 4321IU, FOR MAJOR BLEEDS AS NEEDED
     Dates: start: 201902
  2. KOGENATE FS [Suspect]
     Active Substance: ANTIHEMOPHILIC FACTOR, HUMAN RECOMBINANT
     Indication: FACTOR VIII DEFICIENCY
     Dosage: 2094IU, FOR MINOR BLEEDS AS NEEDED
     Dates: start: 201902

REACTIONS (2)
  - Haemorrhoidal haemorrhage [None]
  - Wound [None]
